FAERS Safety Report 11274022 (Version 1)
Quarter: 2015Q3

REPORT INFORMATION
  Report Type: Other
  Country: US (occurrence: US)
  Receive Date: 20150715
  Receipt Date: 20150715
  Transmission Date: 20151125
  Serious: Yes (Other)
  Sender: FDA-Public Use
  Company Number: US-FRI-1000078121

PATIENT
  Sex: Female
  Weight: 57 kg

DRUGS (4)
  1. CEFTAROLINE FOSAMIL [Suspect]
     Active Substance: CEFTAROLINE FOSAMIL
     Dosage: 1800 MG
     Route: 065
  2. CEFTRIAXONE. [Suspect]
     Active Substance: CEFTRIAXONE
     Indication: SUBACUTE ENDOCARDITIS
     Dosage: 2 GRAM
  3. CEFTRIAXONE. [Suspect]
     Active Substance: CEFTRIAXONE
     Dosage: 2 GRAM
  4. CEFTAROLINE FOSAMIL [Suspect]
     Active Substance: CEFTAROLINE FOSAMIL
     Indication: STREPTOCOCCAL BACTERAEMIA
     Dosage: 1800 MG

REACTIONS (6)
  - Agranulocytosis [Recovered/Resolved]
  - Meningitis aseptic [Recovered/Resolved]
  - Aortic valve incompetence [Recovered/Resolved]
  - Intervertebral discitis [Recovered/Resolved]
  - Osteomyelitis [Recovered/Resolved]
  - Neutropenia [Recovered/Resolved]
